FAERS Safety Report 8531887-9 (Version None)
Quarter: 2012Q3

REPORT INFORMATION
  Report Type: 
  Country: None (occurrence: None)
  Receive Date: 20120723
  Receipt Date: 20120712
  Transmission Date: 20120928
  Serious: Yes (Other)
  Sender: FDA-Public Use
  Company Number: US-MYLANLABS-2012S1014441

PATIENT
  Age: 61 Year
  Sex: Female
  Weight: 68.04 kg

DRUGS (9)
  1. LIPITOR [Concomitant]
     Indication: BLOOD CHOLESTEROL INCREASED
     Route: 048
  2. ZYRTEC [Concomitant]
     Indication: MULTIPLE ALLERGIES
     Route: 048
  3. FENTANYL-100 [Suspect]
     Dosage: Q72H
     Route: 062
     Dates: start: 20120701
  4. PROTONIX [Concomitant]
     Indication: GASTROOESOPHAGEAL REFLUX DISEASE
     Route: 048
  5. SYNTHROID [Concomitant]
     Indication: HYPOTHYROIDISM
     Route: 048
  6. FENTANYL-100 [Suspect]
     Indication: BACK PAIN
     Dosage: Q72H
     Route: 062
     Dates: start: 20120514, end: 20120704
  7. MELOXICAM [Concomitant]
     Route: 048
  8. ESTRADIOL [Concomitant]
     Indication: HORMONE REPLACEMENT THERAPY
     Route: 048
  9. AMBIEN [Concomitant]
     Indication: INSOMNIA
     Route: 048

REACTIONS (4)
  - DRUG EFFECT INCREASED [None]
  - LETHARGY [None]
  - NAUSEA [None]
  - VOMITING [None]
